FAERS Safety Report 8914550 (Version 1)
Quarter: 2012Q4

REPORT INFORMATION
  Report Type: 
  Country: DE (occurrence: DE)
  Receive Date: 20121116
  Receipt Date: 20121116
  Transmission Date: 20130627
  Serious: Yes (Other)
  Sender: FDA-Public Use
  Company Number: DE-B.I. PHARMACEUTICALS,INC./RIDGEFIELD-2012-DE-02619DE

PATIENT
  Sex: Male

DRUGS (4)
  1. MICARDIS 80 MG [Suspect]
     Indication: VENTRICULAR FIBRILLATION
  2. VERAPAMIL [Suspect]
     Dosage: 160 mg
     Dates: start: 201210
  3. AMLOBESILAT [Suspect]
     Dates: end: 201210
  4. XARELTO [Concomitant]
     Indication: CEREBROVASCULAR ACCIDENT PROPHYLAXIS

REACTIONS (3)
  - Ventricular fibrillation [Unknown]
  - Drug effect decreased [Unknown]
  - Blood pressure inadequately controlled [None]
